FAERS Safety Report 22126743 (Version 2)
Quarter: 2023Q1

REPORT INFORMATION
  Report Type: Other
  Country: US (occurrence: None)
  Receive Date: 20230322
  Receipt Date: 20230327
  Transmission Date: 20230417
  Serious: Yes (Other)
  Sender: FDA-Public Use
  Company Number: US-ROCHE-3309318

PATIENT
  Age: 57 Year
  Sex: Male

DRUGS (11)
  1. OCREVUS [Suspect]
     Active Substance: OCRELIZUMAB
     Indication: Multiple sclerosis
     Dosage: THEN 600 MG EVERY 6 MONTHS.
     Route: 042
  2. BACLOFEN [Concomitant]
     Active Substance: BACLOFEN
  3. BETAMETHASONE\CLOTRIMAZOLE [Concomitant]
     Active Substance: BETAMETHASONE\CLOTRIMAZOLE
  4. DALFAMPRIDINE [Concomitant]
     Active Substance: DALFAMPRIDINE
  5. DEXTROAMPHETAMINE [Concomitant]
     Active Substance: DEXTROAMPHETAMINE
  6. FLUTICASONE PROPIONATE [Concomitant]
     Active Substance: FLUTICASONE PROPIONATE
  7. IBUPROFEN [Concomitant]
     Active Substance: IBUPROFEN
  8. LISINOPRIL [Concomitant]
     Active Substance: LISINOPRIL
  9. SILDENAFIL [Concomitant]
     Active Substance: SILDENAFIL
  10. SIMVASTATIN [Concomitant]
     Active Substance: SIMVASTATIN
  11. TESTOSTERONE CYPIONATE [Concomitant]
     Active Substance: TESTOSTERONE CYPIONATE

REACTIONS (9)
  - Upper motor neurone lesion [Unknown]
  - Leukoencephalopathy [Unknown]
  - Hyperlipidaemia [Unknown]
  - Affect lability [Unknown]
  - Chronic fatigue syndrome [Unknown]
  - Essential hypertension [Unknown]
  - Muscle spasticity [Unknown]
  - Nystagmus [Unknown]
  - Gait spastic [Unknown]

NARRATIVE: CASE EVENT DATE: 20190415
